FAERS Safety Report 6203328-8 (Version None)
Quarter: 2009Q2

REPORT INFORMATION
  Report Type: 
  Country: None (occurrence: None)
  Receive Date: 20090527
  Receipt Date: 20090519
  Transmission Date: 20091009
  Serious: Yes (Other)
  Sender: FDA-Public Use
  Company Number: PHHY2009DE19899

PATIENT
  Sex: Male

DRUGS (2)
  1. EUCREAS [Suspect]
     Indication: TYPE 2 DIABETES MELLITUS
     Dosage: 1 DF, QD
     Route: 048
     Dates: start: 20090507, end: 20090511
  2. PLAVIX [Concomitant]
     Dosage: 1 DF, QD
     Route: 048

REACTIONS (9)
  - BLOOD GLUCOSE INCREASED [None]
  - DIZZINESS [None]
  - DYSPEPSIA [None]
  - ERUCTATION [None]
  - FEELING COLD [None]
  - MALAISE [None]
  - NAUSEA [None]
  - SHOCK HYPOGLYCAEMIC [None]
  - VOMITING [None]
